FAERS Safety Report 10607304 (Version 1)
Quarter: 2014Q4

REPORT INFORMATION
  Report Type: Spontaneous
  Country: US (occurrence: US)
  Receive Date: 20141125
  Receipt Date: 20141125
  Transmission Date: 20150529
  Serious: Yes (Hospitalization)
  Sender: FDA-Public Use
  Company Number: US-ABBVIE-14P-163-1310737-00

PATIENT
  Sex: Male

DRUGS (1)
  1. ANDROGEL [Suspect]
     Active Substance: TESTOSTERONE
     Indication: BLOOD TESTOSTERONE DECREASED
     Route: 065
     Dates: start: 201001, end: 201212

REACTIONS (24)
  - Dyspnoea [Unknown]
  - Pulmonary embolism [Unknown]
  - Anxiety [Unknown]
  - Dyspnoea [Unknown]
  - Pulmonary embolism [Unknown]
  - Anhedonia [Unknown]
  - Fear [Unknown]
  - Gastrointestinal haemorrhage [Unknown]
  - Haemorrhage intracranial [Unknown]
  - Musculoskeletal stiffness [Unknown]
  - Lung disorder [Unknown]
  - Faeces discoloured [Unknown]
  - Pulmonary embolism [Unknown]
  - Pain [Unknown]
  - Injury [Unknown]
  - Headache [Unknown]
  - Social problem [Unknown]
  - Economic problem [Unknown]
  - Loss of employment [Unknown]
  - Chest pain [Unknown]
  - Dyspnoea [Unknown]
  - Abdominal pain [Unknown]
  - Chest pain [Unknown]
  - Nervous system disorder [Unknown]

NARRATIVE: CASE EVENT DATE: 201111
